FAERS Safety Report 12707024 (Version 1)
Quarter: 2016Q3

REPORT INFORMATION
  Report Type: Spontaneous
  Country: BR (occurrence: BR)
  Receive Date: 20160901
  Receipt Date: 20160901
  Transmission Date: 20161109
  Serious: Yes (Hospitalization, Other)
  Sender: FDA-Public Use
  Company Number: PHHY2016BR114830

PATIENT
  Age: 85 Year
  Sex: Female
  Weight: 77 kg

DRUGS (6)
  1. CALTREN [Concomitant]
     Active Substance: NITRENDIPINE
     Indication: HYPERTENSION
     Dosage: 1 DF (1 TABLET), QD
     Route: 048
  2. EXELON PATCH [Suspect]
     Active Substance: RIVASTIGMINE
     Indication: PERSONALITY DISORDER
     Dosage: 9.5 MG (PATCH 18 MG/10CM2 30 PATCHES), QD
     Route: 062
  3. METFORMIN [Concomitant]
     Active Substance: METFORMIN HYDROCHLORIDE
     Indication: DIABETES MELLITUS
     Dosage: 2 DF (2 TABLETS), QD
     Route: 048
  4. ADDERA 50 K [Concomitant]
     Indication: HYPOVITAMINOSIS
     Dosage: 1 DF (1 CAPSULE) FOR EIGHT WEEKS, UNK
     Route: 065
  5. CRANBERRY CR [Concomitant]
     Indication: PRODUCT USED FOR UNKNOWN INDICATION
     Route: 065
  6. EXELON PATCH [Suspect]
     Active Substance: RIVASTIGMINE
     Indication: MOOD ALTERED

REACTIONS (10)
  - Tongue disorder [Recovered/Resolved]
  - Syncope [Recovered/Resolved]
  - Infection [Unknown]
  - Urinary tract infection [Recovered/Resolved]
  - Product use issue [Unknown]
  - Seizure [Unknown]
  - Pallor [Recovered/Resolved]
  - Hyperhidrosis [Unknown]
  - Petit mal epilepsy [Recovered/Resolved]
  - Decreased appetite [Recovered/Resolved]

NARRATIVE: CASE EVENT DATE: 201501
